FAERS Safety Report 16515631 (Version 1)
Quarter: 2019Q3

REPORT INFORMATION
  Report Type: Spontaneous
  Country: US (occurrence: US)
  Receive Date: 20190702
  Receipt Date: 20190702
  Transmission Date: 20191004
  Serious: Yes (Life-Threatening)
  Sender: FDA-Public Use
  Company Number: None

PATIENT
  Age: 45 Year
  Sex: Female
  Weight: 78.75 kg

DRUGS (3)
  1. TRIAMCINOLONE ACETONIDE DENTAL PASTE, USP, 0.1%, 5G TUBE [Suspect]
     Active Substance: TRIAMCINOLONE ACETONIDE
     Indication: SWOLLEN TONGUE
     Dosage: ?          QUANTITY:1 TUBE (;OTHER ROUTE:APPLY THIN FILM TO TONGUE/LESION?
     Dates: start: 20190430, end: 20190502
  2. TRIAMCINOLONE ACETONIDE DENTAL PASTE, USP, 0.1%, 5G TUBE [Suspect]
     Active Substance: TRIAMCINOLONE ACETONIDE
     Indication: GLOSSODYNIA
     Dosage: ?          QUANTITY:1 TUBE (;OTHER ROUTE:APPLY THIN FILM TO TONGUE/LESION?
     Dates: start: 20190430, end: 20190502
  3. TRIAMCINOLONE ACETONIDE DENTAL PASTE, USP, 0.1%, 5G TUBE [Suspect]
     Active Substance: TRIAMCINOLONE ACETONIDE
     Indication: TONGUE GEOGRAPHIC
     Dosage: ?          QUANTITY:1 TUBE (;OTHER ROUTE:APPLY THIN FILM TO TONGUE/LESION?
     Dates: start: 20190430, end: 20190502

REACTIONS (16)
  - Depression [None]
  - Nausea [None]
  - Affect lability [None]
  - Agitation [None]
  - Nervousness [None]
  - Night sweats [None]
  - Dry mouth [None]
  - Chapped lips [None]
  - Neuralgia [None]
  - Thirst [None]
  - Suicidal ideation [None]
  - Fatigue [None]
  - Anxiety [None]
  - Urine odour abnormal [None]
  - Paranoia [None]
  - Hyperacusis [None]

NARRATIVE: CASE EVENT DATE: 20190501
